FAERS Safety Report 9747854 (Version 1)
Quarter: 2013Q4

REPORT INFORMATION
  Report Type: Spontaneous
  Country: US (occurrence: US)
  Receive Date: 20131212
  Receipt Date: 20131212
  Transmission Date: 20140711
  Serious: No
  Sender: FDA-Public Use
  Company Number: US-TEVA-385225USA

PATIENT
  Age: 19 Year
  Sex: Female
  Weight: 84.44 kg

DRUGS (2)
  1. PARAGARD 380A [Suspect]
     Indication: CONTRACEPTION
     Route: 015
     Dates: start: 20130121, end: 20130128
  2. FLUOXETINE [Concomitant]
     Indication: DEPRESSION
     Dosage: 20 MILLIGRAM DAILY;
     Route: 048
     Dates: start: 20130111

REACTIONS (3)
  - Metrorrhagia [Unknown]
  - Pelvic pain [Unknown]
  - Device expulsion [Recovered/Resolved]
